FAERS Safety Report 5290666-9 (Version None)
Quarter: 2007Q2

REPORT INFORMATION
  Report Type: 
  Country: None (occurrence: None)
  Receive Date: 20070405
  Receipt Date: 20070405
  Transmission Date: 20071010
  Serious: No
  Sender: FDA-Public Use
  Company Number: None

PATIENT
  Age: 46 Year
  Sex: Male
  Weight: 84 kg

DRUGS (11)
  1. LINEZOLID [Suspect]
     Indication: ENTEROCOCCAL BACTERAEMIA
     Dosage: 600MG  PO  Q 12 HOUR
     Route: 048
     Dates: start: 20061226, end: 20070109
  2. URSODIOL [Concomitant]
  3. AMLODIPINE [Concomitant]
  4. METOPROLOL SUCCINATE [Concomitant]
  5. BACTRIM [Concomitant]
  6. CACO3 [Concomitant]
  7. TACROLIMUS [Concomitant]
  8. RANITIDINE [Concomitant]
  9. LEVOFLOXACIN [Concomitant]
  10. PROMETHAZINE [Concomitant]
  11. PIP/TAZO [Concomitant]

REACTIONS (3)
  - BLOOD CULTURE POSITIVE [None]
  - ESCHERICHIA INFECTION [None]
  - PANCYTOPENIA [None]
